FAERS Safety Report 24766341 (Version 1)
Quarter: 2024Q4

REPORT INFORMATION
  Report Type: Spontaneous
  Country: DE (occurrence: DE)
  Receive Date: 20241223
  Receipt Date: 20241223
  Transmission Date: 20250115
  Serious: Yes (Hospitalization)
  Sender: PFIZER
  Company Number: DE-PFIZER INC-202400327899

PATIENT
  Age: 28 Year
  Sex: Female

DRUGS (1)
  1. DINOPROSTONE [Suspect]
     Active Substance: DINOPROSTONE
     Indication: Labour induction
     Dosage: 1X1 MG
     Dates: start: 20241215, end: 20241215

REACTIONS (3)
  - Vulvovaginal pain [Recovered/Resolved]
  - Vaginal oedema [Recovered/Resolved]
  - Genito-pelvic pain/penetration disorder [Recovered/Resolved]

NARRATIVE: CASE EVENT DATE: 20241215
